FAERS Safety Report 12664230 (Version 2)
Quarter: 2016Q3

REPORT INFORMATION
  Report Type: Spontaneous
  Country: CN (occurrence: CN)
  Receive Date: 20160818
  Receipt Date: 20160825
  Transmission Date: 20161109
  Serious: Yes (Other)
  Sender: FDA-Public Use
  Company Number: CN-ELI_LILLY_AND_COMPANY-CN201608006774

PATIENT
  Age: 40 Year
  Sex: Male

DRUGS (1)
  1. CIALIS [Suspect]
     Active Substance: TADALAFIL
     Indication: SEXUAL DYSFUNCTION
     Dosage: HALF OR THIRD OF 20MG TABLET  ONCE OR TWICE A MONTH PRN
     Route: 048
     Dates: start: 2013

REACTIONS (4)
  - Off label use [Unknown]
  - Eye haemorrhage [Unknown]
  - Thrombosis [Unknown]
  - Erectile dysfunction [Not Recovered/Not Resolved]
